FAERS Safety Report 18240088 (Version 5)
Quarter: 2020Q4

REPORT INFORMATION
  Report Type: Report from Study
  Country: None (occurrence: AU)
  Receive Date: 20200908
  Receipt Date: 20201113
  Transmission Date: 20210113
  Serious: Yes (Hospitalization, Other)
  Sender: FDA-Public Use
  Company Number: AU-ABBVIE-20K-008-3552492-00

PATIENT
  Age: 57 Year
  Sex: Male

DRUGS (18)
  1. DUODOPA [Suspect]
     Active Substance: CARBIDOPA\LEVODOPA
  2. ASCORBIC ACID. [Concomitant]
     Active Substance: ASCORBIC ACID
     Indication: PRODUCT USED FOR UNKNOWN INDICATION
     Route: 048
  3. MAGNESIUM ASPARTATE [Concomitant]
     Active Substance: MAGNESIUM ASPARTATE
     Indication: PRODUCT USED FOR UNKNOWN INDICATION
     Route: 048
  4. OXAZEPAM. [Concomitant]
     Active Substance: OXAZEPAM
     Indication: PRODUCT USED FOR UNKNOWN INDICATION
     Route: 048
  5. RISPERIDONE. [Concomitant]
     Active Substance: RISPERIDONE
     Indication: PRODUCT USED FOR UNKNOWN INDICATION
  6. DUODOPA [Suspect]
     Active Substance: CARBIDOPA\LEVODOPA
     Indication: PARKINSON^S DISEASE
     Dosage: 16 HOURS
     Route: 050
     Dates: start: 20160801, end: 2020
  7. CITALOPRAM [Concomitant]
     Active Substance: CITALOPRAM HYDROBROMIDE
     Indication: PRODUCT USED FOR UNKNOWN INDICATION
     Route: 048
  8. CEFTRIAXONE. [Concomitant]
     Active Substance: CEFTRIAXONE
     Indication: PRODUCT USED FOR UNKNOWN INDICATION
  9. AUGMENTIN DF [Concomitant]
     Indication: PRODUCT USED FOR UNKNOWN INDICATION
  10. ENTACAPONE. [Concomitant]
     Active Substance: ENTACAPONE
     Indication: PRODUCT USED FOR UNKNOWN INDICATION
     Dosage: AT NIGHT
     Route: 048
  11. LIQUID SINEMET [Concomitant]
     Dosage: 1 HR
  12. LIQUID SINEMET [Concomitant]
  13. PREGABALIN. [Concomitant]
     Active Substance: PREGABALIN
     Indication: PRODUCT USED FOR UNKNOWN INDICATION
     Route: 048
  14. LACTULOSE. [Concomitant]
     Active Substance: LACTULOSE
     Indication: PRODUCT USED FOR UNKNOWN INDICATION
     Dosage: 3.34 G/5 ML ORAL SOLUTION
  15. PANAMAX [Concomitant]
     Active Substance: ACETAMINOPHEN
     Indication: PRODUCT USED FOR UNKNOWN INDICATION
     Route: 048
  16. QUETIAPINE. [Concomitant]
     Active Substance: QUETIAPINE
     Indication: DYSKINESIA
  17. LIQUID SINEMET [Concomitant]
     Indication: PRODUCT USED FOR UNKNOWN INDICATION
     Route: 050
  18. QUETIAPINE. [Concomitant]
     Active Substance: QUETIAPINE
     Indication: DYSKINESIA
     Route: 048

REACTIONS (20)
  - Malnutrition [Recovering/Resolving]
  - Hypophagia [Recovering/Resolving]
  - Embedded device [Not Recovered/Not Resolved]
  - Peritonitis [Unknown]
  - Device issue [Not Recovered/Not Resolved]
  - Weight decreased [Unknown]
  - Behaviour disorder [Unknown]
  - Fall [Unknown]
  - Diarrhoea [Recovered/Resolved]
  - Dyskinesia [Recovering/Resolving]
  - Depressed mood [Recovering/Resolving]
  - Stoma site pain [Not Recovered/Not Resolved]
  - Abscess [Unknown]
  - Stoma site erythema [Not Recovered/Not Resolved]
  - Stoma site discharge [Not Recovered/Not Resolved]
  - Device dislocation [Unknown]
  - Muscle rigidity [Unknown]
  - Gait disturbance [Unknown]
  - Malaise [Unknown]
  - Pyrexia [Unknown]

NARRATIVE: CASE EVENT DATE: 2020
